FAERS Safety Report 5853465-2 (Version None)
Quarter: 2008Q3

REPORT INFORMATION
  Report Type: 
  Country: None (occurrence: None)
  Receive Date: 20080820
  Receipt Date: 20080807
  Transmission Date: 20090109
  Serious: Yes (Other)
  Sender: FDA-Public Use
  Company Number: GB-DEXPHARM-20080897

PATIENT
  Age: 73 Year
  Sex: Male

DRUGS (2)
  1. OMEPRAZOLE [Suspect]
     Indication: GASTROOESOPHAGEAL REFLUX DISEASE
     Dosage: 10 MILLIGRAM (S), ORAL
     Route: 048
     Dates: start: 20080326, end: 20080708
  2. ALLOPURINOL [Concomitant]

REACTIONS (3)
  - BLOOD TEST ABNORMAL [None]
  - UNEVALUABLE EVENT [None]
  - VASCULITIS [None]
